FAERS Safety Report 6242453-2 (Version None)
Quarter: 2009Q2

REPORT INFORMATION
  Report Type: 
  Country: None (occurrence: None)
  Receive Date: 20090622
  Receipt Date: 20090622
  Transmission Date: 20091009
  Serious: Yes (Life-Threatening)
  Sender: FDA-Public Use
  Company Number: None

PATIENT
  Age: 56 Year
  Sex: Male
  Weight: 99.7913 kg

DRUGS (1)
  1. TRAMADOL HCL [Suspect]
     Indication: OSTEONECROSIS
     Dosage: 50MG EVERY 6 HOURS PO
     Route: 048
     Dates: start: 20080211, end: 20090104

REACTIONS (7)
  - ANXIETY [None]
  - DRUG INEFFECTIVE [None]
  - INCORRECT DRUG DOSAGE FORM ADMINISTERED [None]
  - INSOMNIA [None]
  - PSYCHOTIC DISORDER [None]
  - TREMOR [None]
  - WITHDRAWAL SYNDROME [None]
